FAERS Safety Report 19703645 (Version 1)
Quarter: 2021Q3

REPORT INFORMATION
  Report Type: Report from Study
  Country: IT (occurrence: IT)
  Receive Date: 20210816
  Receipt Date: 20210816
  Transmission Date: 20211014
  Serious: Yes (Other)
  Sender: FDA-Public Use
  Company Number: IT-GLAXOSMITHKLINE-IT2021168115

PATIENT
  Age: 3 Month
  Sex: Male

DRUGS (2)
  1. ROTAVIRUS VACCINE [Suspect]
     Active Substance: HUMAN ROTAVIRUS A
     Indication: PROPHYLAXIS
     Dosage: 1 DF
     Route: 065
     Dates: start: 20210629
  2. BEXSERO [Suspect]
     Active Substance: NEISSERIA MENINGITIDIS GROUP B FHBP FUSION PROTEIN ANTIGEN\NEISSERIA MENINGITIDIS GROUP B NADA PROTEIN ANTIGEN\NEISSERIA MENINGITIDIS GROUP B NHBA FUSION PROTEIN ANTIGEN\NEISSERIA MENINGITIDIS GROUP B STRAIN NZ98/254 OUTER MEMBRANE VESICLE\NEISSERIA MENINGITIDIS SEROGROUP B FHBP FUSION PROTEIN ANTIG
     Indication: PROPHYLAXIS
     Route: 065
     Dates: start: 20210629

REACTIONS (3)
  - Pyrexia [Unknown]
  - Seizure [Unknown]
  - Diarrhoea [Unknown]

NARRATIVE: CASE EVENT DATE: 20210629
